FAERS Safety Report 6543929-0 (Version None)
Quarter: 2010Q1

REPORT INFORMATION
  Report Type: 
  Country: None (occurrence: None)
  Receive Date: 20100120
  Receipt Date: 20100108
  Transmission Date: 20100710
  Serious: Yes (Other)
  Sender: FDA-Public Use
  Company Number: TR-ELI_LILLY_AND_COMPANY-TR201001001433

PATIENT
  Age: 20 Year
  Sex: Female

DRUGS (5)
  1. HUMULIN R [Suspect]
     Indication: GESTATIONAL DIABETES
     Dosage: 13 IU, EACH MORNING
     Route: 058
     Dates: start: 20091001
  2. HUMULIN R [Suspect]
     Dosage: 21 IU, DAILY (1/D)
     Route: 058
     Dates: start: 20091001
  3. HUMULIN R [Suspect]
     Dosage: 20 IU, EACH EVENING
     Route: 058
     Dates: start: 20091001
  4. HUMULIN N [Suspect]
     Indication: GESTATIONAL DIABETES
     Dosage: 22 U, DAILY (1/D)
     Route: 058
     Dates: start: 20091001
  5. FOLIC ACID W/IRON [Concomitant]
     Indication: SUPPLEMENTATION THERAPY
     Dosage: UNK, 2/D
     Dates: start: 20100107

REACTIONS (3)
  - ABORTION THREATENED [None]
  - DRUG EXPOSURE DURING PREGNANCY [None]
  - HYPOGLYCAEMIA [None]
